FAERS Safety Report 12486132 (Version 1)
Quarter: 2016Q2

REPORT INFORMATION
  Report Type: Spontaneous
  Country: US (occurrence: US)
  Receive Date: 20160621
  Receipt Date: 20160621
  Transmission Date: 20160815
  Serious: Yes (Hospitalization, Other)
  Sender: FDA-Public Use
  Company Number: US-TEVA-669159USA

PATIENT
  Age: 53 Year
  Sex: Female

DRUGS (3)
  1. COPAXONE [Suspect]
     Active Substance: GLATIRAMER ACETATE
     Indication: MULTIPLE SCLEROSIS
     Route: 058
     Dates: start: 20151001
  2. PROVIGIL [Concomitant]
     Active Substance: MODAFINIL
  3. ALPRAZOLAM. [Concomitant]
     Active Substance: ALPRAZOLAM

REACTIONS (3)
  - Dysstasia [Unknown]
  - Knee operation [Unknown]
  - Joint swelling [Unknown]

NARRATIVE: CASE EVENT DATE: 20160606
